FAERS Safety Report 5896396-4 (Version None)
Quarter: 2008Q3

REPORT INFORMATION
  Report Type: 
  Country: None (occurrence: None)
  Receive Date: 20080923
  Receipt Date: 20080908
  Transmission Date: 20090109
  Serious: Yes (Death)
  Sender: FDA-Public Use
  Company Number: KADN20080349

PATIENT
  Age: 17 Year
  Sex: Female

DRUGS (3)
  1. MORPHINE [Suspect]
     Dosage: UNKNOWN, UNKNOWN, ORAL
     Route: 048
     Dates: end: 20050101
  2. ETHANOL [Suspect]
     Dosage: UNKNOWN, UNKNOWN, ORAL
     Route: 048
     Dates: end: 20050101
  3. ALPRAZOLAM [Suspect]
     Dosage: UNKNOWN, UNKNOWN, ORAL
     Route: 048
     Dates: end: 20050101

REACTIONS (5)
  - ANALGESIC DRUG LEVEL ABOVE THERAPEUTIC [None]
  - BLOOD ETHANOL INCREASED [None]
  - BRAIN OEDEMA [None]
  - GASTRITIS [None]
  - PULMONARY CONGESTION [None]
